FAERS Safety Report 16397684 (Version 1)
Quarter: 2019Q2

REPORT INFORMATION
  Report Type: Spontaneous
  Country: GB (occurrence: GB)
  Receive Date: 20190606
  Receipt Date: 20190606
  Transmission Date: 20190711
  Serious: Yes (Hospitalization)
  Sender: FDA-Public Use
  Company Number: GB-ACCORD-131430

PATIENT
  Age: 86 Year
  Sex: Female
  Weight: 40 kg

DRUGS (14)
  1. FERROUS FUMARATE [Concomitant]
     Active Substance: FERROUS FUMARATE
  2. SIMVASTATIN. [Concomitant]
     Active Substance: SIMVASTATIN
  3. TRAZODONE [Concomitant]
     Active Substance: TRAZODONE HYDROCHLORIDE
  4. AMLODIPINE [Concomitant]
     Active Substance: AMLODIPINE BESYLATE
  5. ZOPICLONE [Concomitant]
     Active Substance: ZOPICLONE
  6. TRIMETHOPRIM. [Concomitant]
     Active Substance: TRIMETHOPRIM
     Indication: URINARY TRACT INFECTION
  7. ATENOLOL/ATENOLOL HYDROCHLORIDE [Concomitant]
  8. METFORMIN [Suspect]
     Active Substance: METFORMIN HYDROCHLORIDE
     Indication: TYPE 2 DIABETES MELLITUS
     Dosage: IN THE MORNING.
     Route: 048
     Dates: start: 20180701, end: 20190411
  9. ACCRETE D3 [Concomitant]
     Active Substance: CALCIUM CARBONATE\CHOLECALCIFEROL
  10. PARACETAMOL [Concomitant]
     Active Substance: ACETAMINOPHEN
  11. SERTRALINE [Concomitant]
     Active Substance: SERTRALINE HYDROCHLORIDE
  12. RAMIPRIL. [Suspect]
     Active Substance: RAMIPRIL
     Indication: ESSENTIAL HYPERTENSION
     Dosage: IN THE MORNING.
     Route: 048
     Dates: start: 20180701, end: 20190411
  13. OMEPRAZOLE. [Concomitant]
     Active Substance: OMEPRAZOLE
  14. MEMANTINE/MEMANTINE HYDROCHLORIDE [Concomitant]

REACTIONS (4)
  - Confusional state [Unknown]
  - Acute kidney injury [Recovering/Resolving]
  - Delirium [Unknown]
  - Hypophagia [Unknown]

NARRATIVE: CASE EVENT DATE: 20190410
